FAERS Safety Report 6407092-9 (Version None)
Quarter: 2009Q4

REPORT INFORMATION
  Report Type: 
  Country: None (occurrence: None)
  Receive Date: 20091020
  Receipt Date: 20091009
  Transmission Date: 20100525
  Serious: Yes (Hospitalization)
  Sender: FDA-Public Use
  Company Number: BR-NOVOPROD-292663

PATIENT
  Age: 63 Year
  Sex: Male
  Weight: 106 kg

DRUGS (4)
  1. NOVOMIX 30 FLEXPEN [Suspect]
     Indication: TYPE 2 DIABETES MELLITUS
     Dosage: 36 IU, QD
  2. METFORMIN [Concomitant]
     Indication: DIABETES MELLITUS
     Dosage: 3 TAB, QD
     Route: 048
     Dates: start: 20010101
  3. GLIBENCLAMIDE [Concomitant]
     Indication: DIABETES MELLITUS
     Dosage: 10 MG, QD
     Route: 048
  4. ACETYLSALICYLIC ACID [Concomitant]
     Dosage: 1 TAB, QD
     Route: 048
     Dates: start: 19920101

REACTIONS (1)
  - TOE AMPUTATION [None]
